FAERS Safety Report 6875511-X (Version None)
Quarter: 2010Q3

REPORT INFORMATION
  Report Type: 
  Country: None (occurrence: None)
  Receive Date: 20100727
  Receipt Date: 20100716
  Transmission Date: 20110219
  Serious: Yes (Hospitalization)
  Sender: FDA-Public Use
  Company Number: US-JNJFOC-20100705996

PATIENT
  Sex: Female
  Weight: 56.7 kg

DRUGS (8)
  1. SANDOZ FENTANYL TRANSDERMAL SYSTEM [Suspect]
     Indication: PAIN
     Route: 062
  2. SANDOZ FENTANYL TRANSDERMAL SYSTEM [Suspect]
     Route: 062
  3. SANDOZ FENTANYL TRANSDERMAL SYSTEM [Suspect]
     Route: 062
  4. DURAGESIC RESERVOIR PATCH [Suspect]
     Indication: PAIN
     Route: 062
  5. DURAGESIC RESERVOIR PATCH [Suspect]
     Route: 062
  6. UNSPECIFIED FENTNAYL TRANSDERMAL SYSTEM [Suspect]
     Indication: PAIN
     Route: 062
  7. BENICAR [Concomitant]
     Indication: BLOOD PRESSURE
     Dosage: 40/25.5MG/TABLET/DAILY/ORAL
     Route: 048
  8. AMBIEN [Concomitant]
     Indication: SLEEP DISORDER
     Route: 048

REACTIONS (7)
  - APPLICATION SITE PRURITUS [None]
  - APPLICATION SITE RASH [None]
  - DIZZINESS [None]
  - GASTROINTESTINAL DISORDER [None]
  - MALAISE [None]
  - NAUSEA [None]
  - WRONG TECHNIQUE IN DRUG USAGE PROCESS [None]
